FAERS Safety Report 9935211 (Version 2)
Quarter: 2014Q1

REPORT INFORMATION
  Report Type: Report from Study
  Country: FR (occurrence: FR)
  Receive Date: 20140228
  Receipt Date: 20140228
  Transmission Date: 20141002
  Serious: Yes (Hospitalization)
  Sender: FDA-Public Use
  Company Number: FR-PFIZER INC-2012196514

PATIENT
  Age: 69 Year
  Sex: Female
  Weight: 81 kg

DRUGS (4)
  1. CRIZOTINIB [Suspect]
     Indication: NON-SMALL CELL LUNG CANCER
     Dosage: 250 MG, 2X/DAY, CONTINUOUS
     Route: 048
     Dates: start: 20120628, end: 20120810
  2. INIPOMP [Concomitant]
     Indication: PROPHYLAXIS AGAINST GASTROINTESTINAL ULCER
     Dosage: UNK
  3. TRIATEC [Concomitant]
     Indication: HYPERTENSION
     Dosage: 2.5 MG, 1X/DAY
  4. LASILIX [Concomitant]
     Indication: PLEURAL EFFUSION
     Dosage: UNK
     Dates: start: 20120705

REACTIONS (3)
  - Pyrexia [Recovered/Resolved]
  - Oesophagitis [Recovered/Resolved]
  - Diarrhoea [Recovered/Resolved]
